FAERS Safety Report 21567683 (Version 1)
Quarter: 2022Q4

REPORT INFORMATION
  Report Type: Spontaneous
  Country: US (occurrence: None)
  Receive Date: 20221108
  Receipt Date: 20221108
  Transmission Date: 20230113
  Serious: Yes (unspecified)
  Sender: FDA-Public Use
  Company Number: None

PATIENT
  Age: 38 Year
  Sex: Female
  Weight: 63 kg

DRUGS (1)
  1. CLENPIQ [Suspect]
     Active Substance: ANHYDROUS CITRIC ACID\MAGNESIUM OXIDE\SODIUM PICOSULFATE
     Indication: Colonoscopy
     Dosage: OTHER QUANTITY : 2 BOTTLE;?FREQUENCY : TWICE A DAY;?
     Route: 048
     Dates: start: 20221107, end: 20221108

REACTIONS (10)
  - Feeling of body temperature change [None]
  - Nausea [None]
  - Diarrhoea [None]
  - Dizziness [None]
  - Hyperhidrosis [None]
  - Vomiting [None]
  - Syncope [None]
  - Body temperature increased [None]
  - Lethargy [None]
  - Anxiety [None]

NARRATIVE: CASE EVENT DATE: 20221107
